FAERS Safety Report 14868353 (Version 1)
Quarter: 2018Q2

REPORT INFORMATION
  Report Type: Spontaneous
  Country: JP (occurrence: JP)
  Receive Date: 20180509
  Receipt Date: 20180509
  Transmission Date: 20180711
  Serious: Yes (Other)
  Sender: FDA-Public Use
  Company Number: JP-ACCORD-066660

PATIENT
  Age: 61 Year
  Sex: Female

DRUGS (2)
  1. TACROLIMUS. [Suspect]
     Active Substance: TACROLIMUS
     Indication: INTERSTITIAL LUNG DISEASE
     Dosage: INCREASED UP TO 3 MG, THEN DECREASED UP TO 2.4 MG
     Dates: start: 2016, end: 2016
  2. CYCLOPHOSPHAMIDE/CYCLOPHOSPHAMIDE MONOHYDRATE [Concomitant]
     Indication: INTERSTITIAL LUNG DISEASE
     Dosage: 500 MG/MM^2
     Route: 042
     Dates: start: 2016

REACTIONS (1)
  - Nephrotic syndrome [Recovering/Resolving]

NARRATIVE: CASE EVENT DATE: 2016
